FAERS Safety Report 6348573-6 (Version None)
Quarter: 2009Q3

REPORT INFORMATION
  Report Type: 
  Country: None (occurrence: None)
  Receive Date: 20090911
  Receipt Date: 20090831
  Transmission Date: 20100115
  Serious: Yes (Death, Hospitalization, Other)
  Sender: FDA-Public Use
  Company Number: DE-JNJFOC-20090900402

PATIENT
  Age: 67 Year
  Sex: Male

DRUGS (6)
  1. REMICADE [Suspect]
     Route: 042
     Dates: start: 20020301, end: 20090707
  2. REMICADE [Suspect]
     Indication: RHEUMATOID ARTHRITIS
     Route: 042
     Dates: start: 20020301, end: 20090707
  3. REMICADE [Suspect]
     Indication: ANKYLOSING SPONDYLITIS
     Route: 042
     Dates: start: 20020301, end: 20090707
  4. METHOTREXATE [Concomitant]
     Indication: RHEUMATOID ARTHRITIS
     Route: 048
  5. SIMVASTATIN [Concomitant]
     Indication: CORONARY ARTERY DISEASE
     Route: 048
  6. ASPIRIN [Concomitant]
     Indication: CORONARY ARTERY DISEASE
     Route: 048

REACTIONS (8)
  - ANKYLOSING SPONDYLITIS [None]
  - DUODENAL ULCER [None]
  - EPISTAXIS [None]
  - GASTRIC ULCER [None]
  - HAEMOPTYSIS [None]
  - HAEMORRHAGIC EROSIVE GASTRITIS [None]
  - MYOCARDIAL INFARCTION [None]
  - SUDDEN CARDIAC DEATH [None]
